FAERS Safety Report 7298434-3 (Version None)
Quarter: 2011Q1

REPORT INFORMATION
  Report Type: 
  Country: None (occurrence: None)
  Receive Date: 20110204
  Receipt Date: 20110126
  Transmission Date: 20110831
  Serious: Yes (Other)
  Sender: FDA-Public Use
  Company Number: 8014076

PATIENT
  Sex: Male
  Weight: 89 kg

DRUGS (15)
  1. PLAQUENIL [Concomitant]
  2. DELTACORTRIL /00016201/ [Concomitant]
  3. ASPIRIN [Concomitant]
  4. OMNIC [Concomitant]
  5. FOLIC ACID [Concomitant]
  6. OTRIVINE [Concomitant]
  7. ATORVASTATIN CALCIUM [Concomitant]
  8. CERTOLIZUMAB PEGOL (CERTOLIZUMAB PEGOL) [Suspect]
     Indication: RHEUMATOID ARTHRITIS
     Dosage: (400 MG 1X/MONTH SUBCUTANEOUS) ; (400 MG 1X/MONTH SUBCUTANEOUS)
     Route: 058
     Dates: start: 20031105, end: 20061205
  9. CERTOLIZUMAB PEGOL (CERTOLIZUMAB PEGOL) [Suspect]
     Indication: RHEUMATOID ARTHRITIS
     Dosage: (400 MG 1X/MONTH SUBCUTANEOUS) ; (400 MG 1X/MONTH SUBCUTANEOUS)
     Route: 058
     Dates: start: 20030519, end: 20030930
  10. NAPROXEN [Concomitant]
  11. CALCICHEW [Concomitant]
  12. AMLODIPINE [Concomitant]
  13. ATENOLOL [Concomitant]
  14. DISTALGESIC [Concomitant]
  15. LEVITRA [Concomitant]

REACTIONS (10)
  - BLADDER OBSTRUCTION [None]
  - GOITRE [None]
  - HYPERTENSION [None]
  - PEYRONIE'S DISEASE [None]
  - DYSPNOEA [None]
  - WEIGHT INCREASED [None]
  - DYSPHAGIA [None]
  - HYPERCHOLESTEROLAEMIA [None]
  - TEMPERATURE INTOLERANCE [None]
  - THYROID CANCER [None]
